FAERS Safety Report 16434821 (Version 2)
Quarter: 2019Q3

REPORT INFORMATION
  Report Type: Spontaneous
  Country: US (occurrence: US)
  Receive Date: 20190614
  Receipt Date: 20190725
  Transmission Date: 20191004
  Serious: No
  Sender: FDA-Public Use
  Company Number: US-JNJFOC-20190615923

PATIENT
  Sex: Female
  Weight: 85.81 kg

DRUGS (1)
  1. DURAGESIC [Suspect]
     Active Substance: FENTANYL
     Indication: PAIN
     Route: 062
     Dates: start: 2009

REACTIONS (3)
  - Product complaint [Unknown]
  - Application site exfoliation [Not Recovered/Not Resolved]
  - Product adhesion issue [Unknown]
